FAERS Safety Report 6427444-0 (Version None)
Quarter: 2009Q4

REPORT INFORMATION
  Report Type: 
  Country: None (occurrence: None)
  Receive Date: 20091104
  Receipt Date: 20091029
  Transmission Date: 20100525
  Serious: Yes (Other)
  Sender: FDA-Public Use
  Company Number: BR-ABBOTT-09P-020-0605810-00

PATIENT
  Sex: Female
  Weight: 87 kg

DRUGS (9)
  1. HUMIRA [Suspect]
     Indication: RHEUMATOID ARTHRITIS
     Route: 058
     Dates: start: 20080411
  2. HUMIRA [Suspect]
  3. METHOTREXATE [Concomitant]
     Indication: MUSCULOSKELETAL PAIN
     Route: 048
     Dates: start: 20080101
  4. OMEPRAZOLE [Concomitant]
     Indication: GASTRIC DISORDER
     Route: 048
     Dates: start: 20070101
  5. DICLOFENAC [Concomitant]
     Indication: MUSCULOSKELETAL PAIN
     Route: 048
     Dates: start: 20050101
  6. PREDNISONE TAB [Concomitant]
     Indication: MUSCULOSKELETAL PAIN
     Route: 048
     Dates: start: 20070101
  7. HYDROCHLOROTHIAZIDE [Concomitant]
     Indication: HYPERTENSION
     Route: 048
     Dates: start: 20080101
  8. NEUFLUOXETIN [Concomitant]
     Indication: SEDATIVE THERAPY
     Route: 048
     Dates: start: 20090401
  9. ETHINYLESTRADIOL W/GESTODENE [Concomitant]
     Indication: CONTRACEPTION
     Route: 048
     Dates: start: 19990101

REACTIONS (1)
  - TOOTH DISORDER [None]
